FAERS Safety Report 16431975 (Version 1)
Quarter: 2019Q2

REPORT INFORMATION
  Report Type: Other
  Country: HR (occurrence: HR)
  Receive Date: 20190614
  Receipt Date: 20190614
  Transmission Date: 20190711
  Serious: Yes (Other)
  Sender: FDA-Public Use
  Company Number: HR-STRIDES ARCOLAB LIMITED-2019SP005016

PATIENT
  Age: 15 Year
  Sex: Female

DRUGS (2)
  1. METFORMIN [Suspect]
     Active Substance: METFORMIN HYDROCHLORIDE
     Indication: PRODUCT USED FOR UNKNOWN INDICATION
     Dosage: 7 G, UNKNOWN
     Route: 048
     Dates: start: 20190131, end: 20190131
  2. IBUPROFEN. [Suspect]
     Active Substance: IBUPROFEN
     Indication: PRODUCT USED FOR UNKNOWN INDICATION
     Dosage: 6.5 G, UNKNOWN
     Route: 048
     Dates: start: 20190131, end: 20190131

REACTIONS (4)
  - Nausea [Unknown]
  - Intentional overdose [Unknown]
  - Vomiting [Unknown]
  - Suicide attempt [Unknown]

NARRATIVE: CASE EVENT DATE: 20190131
